FAERS Safety Report 10755653 (Version 2)
Quarter: 2015Q1

REPORT INFORMATION
  Report Type: Spontaneous
  Country: JP (occurrence: JP)
  Receive Date: 20150202
  Receipt Date: 20150317
  Transmission Date: 20150721
  Serious: Yes (Death, Hospitalization)
  Sender: FDA-Public Use
  Company Number: JP-009507513-1501JPN009865

PATIENT
  Age: 61 Year
  Sex: Male
  Weight: 61 kg

DRUGS (10)
  1. DEXART [Suspect]
     Active Substance: DEXAMETHASONE SODIUM PHOSPHATE
     Dosage: 4 COURSES
  2. VELCADE [Suspect]
     Active Substance: BORTEZOMIB
     Indication: PLASMA CELL LEUKAEMIA
     Dosage: 1.3 MG/M2, QD, DAY 1, 4, 8, 11
     Route: 051
     Dates: start: 2012, end: 2012
  3. CLARITHROMYCIN. [Suspect]
     Active Substance: CLARITHROMYCIN
     Indication: PLASMA CELL LEUKAEMIA
     Dosage: 400 MG, QD, DIVIDED DOSE FREQUENCY UNKNOWN, DAY 8-14 (FORMULATION: POR)
     Route: 048
     Dates: start: 2012, end: 2012
  4. MK-0000 [Suspect]
     Active Substance: INVESTIGATIONAL PRODUCT
  5. REVLIMID [Suspect]
     Active Substance: LENALIDOMIDE
     Dosage: UNK
     Dates: start: 2008, end: 2012
  6. DEXART [Suspect]
     Active Substance: DEXAMETHASONE SODIUM PHOSPHATE
     Dosage: UNK
     Dates: start: 2008, end: 2012
  7. ALLOPURINOL. [Concomitant]
     Active Substance: ALLOPURINOL
     Indication: PROPHYLAXIS
     Dosage: DAILY DOSE UNKNOWN
     Route: 048
  8. VELCADE [Suspect]
     Active Substance: BORTEZOMIB
     Dosage: UNK
     Dates: start: 2008, end: 2012
  9. DEXART [Suspect]
     Active Substance: DEXAMETHASONE SODIUM PHOSPHATE
     Indication: PLASMA CELL LEUKAEMIA
     Dosage: 20 MG, QD, DIVIDED DOSE FREQUENCY UNKNOWN, DAY 1, 2, 4, 5, 8, 9, 11, 12
     Route: 042
     Dates: start: 2012, end: 2012
  10. REVLIMID [Suspect]
     Active Substance: LENALIDOMIDE
     Indication: PLASMA CELL LEUKAEMIA
     Dosage: 10 MG, QD, DIVIDED DOSE FREQUENCY UNKNOWN, DAY 8-14
     Route: 048
     Dates: start: 2012, end: 2012

REACTIONS (2)
  - Drug ineffective [Recovered/Resolved]
  - Tumour lysis syndrome [Fatal]

NARRATIVE: CASE EVENT DATE: 2012
